FAERS Safety Report 4871185-8 (Version None)
Quarter: 2005Q4

REPORT INFORMATION
  Report Type: 
  Country: None (occurrence: None)
  Receive Date: 20051229
  Receipt Date: 20051219
  Transmission Date: 20060501
  Serious: Yes (Hospitalization)
  Sender: FDA-Public Use
  Company Number: 2005-DE-05551GD

PATIENT
  Age: 57 Year
  Sex: Male

DRUGS (8)
  1. LANSOPRAZOLE [Suspect]
     Indication: GASTRITIS EROSIVE
     Dosage: 30 MG
  2. LANSOPRAZOLE [Suspect]
     Indication: HELICOBACTER INFECTION
     Dosage: 30 MG
  3. LANSOPRAZOLE [Suspect]
     Indication: REFLUX OESOPHAGITIS
     Dosage: 30 MG
  4. LOPERAMIDE HCL [Suspect]
     Indication: DIARRHOEA
  5. CLARITHROMYCIN [Suspect]
     Indication: HELICOBACTER INFECTION
  6. METRONIDAZOLE [Suspect]
     Indication: HELICOBACTER INFECTION
  7. ESOMEPRAZOLE (ESOMEPRAZOLE) [Suspect]
     Indication: HELICOBACTER INFECTION
  8. AMOXICILLIN [Concomitant]

REACTIONS (4)
  - C-REACTIVE PROTEIN INCREASED [None]
  - COLITIS COLLAGENOUS [None]
  - DIVERTICULUM INTESTINAL [None]
  - THERAPEUTIC RESPONSE DECREASED [None]
